FAERS Safety Report 11509518 (Version 1)
Quarter: 2015Q3

REPORT INFORMATION
  Report Type: Spontaneous
  Country: US (occurrence: US)
  Receive Date: 20150915
  Receipt Date: 20150915
  Transmission Date: 20151125
  Serious: No
  Sender: FDA-Public Use
  Company Number: US-MARATHON PHARMACEUTICALS-2014MAR00017

PATIENT
  Age: 8 Year
  Sex: Female

DRUGS (1)
  1. ZINGO [Suspect]
     Active Substance: LIDOCAINE HYDROCHLORIDE
     Indication: HYPOAESTHESIA
     Dosage: UNK UNK, ONCE
     Route: 023
     Dates: start: 20141201, end: 20141201

REACTIONS (3)
  - Injection site erythema [Recovering/Resolving]
  - Injection site haemorrhage [Recovered/Resolved]
  - Injection site urticaria [Recovered/Resolved]

NARRATIVE: CASE EVENT DATE: 20141201
